FAERS Safety Report 18847100 (Version 1)
Quarter: 2021Q1

REPORT INFORMATION
  Report Type: Spontaneous
  Country: US (occurrence: US)
  Receive Date: 20210204
  Receipt Date: 20210204
  Transmission Date: 20210419
  Serious: No
  Sender: FDA-Public Use
  Company Number: US-PFIZER INC-2021076184

PATIENT
  Age: 81 Year
  Sex: Male

DRUGS (2)
  1. NEURONTIN [Suspect]
     Active Substance: GABAPENTIN
     Indication: PRURITUS
     Dosage: 100 MG, DAILY
  2. NEURONTIN [Suspect]
     Active Substance: GABAPENTIN
     Indication: INSOMNIA
     Dosage: 3 DF, DAILY

REACTIONS (2)
  - Blood glucose decreased [Unknown]
  - Off label use [Unknown]
